FAERS Safety Report 4365102-7 (Version None)
Quarter: 2004Q2

REPORT INFORMATION
  Report Type: 
  Country: None (occurrence: None)
  Receive Date: 20040521
  Receipt Date: 20040510
  Transmission Date: 20050107
  Serious: No
  Sender: FDA-Public Use
  Company Number: A04200400263

PATIENT
  Age: 54 Year
  Sex: Male

DRUGS (1)
  1. ARIXTRA [Suspect]
     Indication: THROMBOSIS PROPHYLAXIS
     Dosage: 205 MG OD; ORAL
     Route: 048
     Dates: start: 20040101

REACTIONS (1)
  - THROMBOSIS [None]
